FAERS Safety Report 9432516 (Version 1)
Quarter: 2013Q3

REPORT INFORMATION
  Report Type: Spontaneous
  Country: US (occurrence: None)
  Receive Date: 20130730
  Receipt Date: 20130730
  Transmission Date: 20140515
  Serious: Yes (Hospitalization)
  Sender: FDA-Public Use
  Company Number: None

PATIENT
  Age: 58 Year
  Sex: Male

DRUGS (12)
  1. PEGASYS [Suspect]
  2. RIBAVIRIN [Suspect]
  3. INCIVEK [Suspect]
  4. GABAPENTIN [Concomitant]
  5. CLOPIDOGREL [Concomitant]
  6. NADOLOL [Concomitant]
  7. ZOLPIDEM [Concomitant]
  8. AMITRIPTYLINE [Concomitant]
  9. SPIRONOLACTONE [Concomitant]
  10. OMEPRAZOLE [Concomitant]
  11. FUROSEMIDE [Concomitant]
  12. ASA [Concomitant]

REACTIONS (2)
  - Hepatic encephalopathy [None]
  - Hepatic failure [None]
